FAERS Safety Report 25864081 (Version 1)
Quarter: 2025Q3

REPORT INFORMATION
  Report Type: Spontaneous
  Country: US (occurrence: None)
  Receive Date: 20250929
  Receipt Date: 20250929
  Transmission Date: 20251020
  Serious: Yes (Other)
  Sender: FDA-CTU
  Company Number: None

PATIENT
  Age: 78 Year
  Sex: Female

DRUGS (1)
  1. ELTROMBOPAG [Suspect]
     Active Substance: ELTROMBOPAG
     Indication: Prostate cancer
     Dosage: OTHER QUANTITY : 100MG (BUT 50MG STRENGTH);?FREQUENCY : DAILY;?

REACTIONS (2)
  - Product label confusion [None]
  - Therapy change [None]
